FAERS Safety Report 6388003-1 (Version None)
Quarter: 2009Q3

REPORT INFORMATION
  Report Type: 
  Country: None (occurrence: None)
  Receive Date: 20090930
  Receipt Date: 20090921
  Transmission Date: 20100115
  Serious: Yes (Hospitalization)
  Sender: FDA-Public Use
  Company Number: 386762

PATIENT
  Age: 45 Year
  Sex: Male

DRUGS (10)
  1. CARBOPLATIN [Suspect]
     Indication: GLIOBLASTOMA MULTIFORME
     Dosage: 3 WEEKLY CYCLE
     Dates: start: 20090721
  2. PHENYTOIN [Suspect]
  3. AVASTIN [Suspect]
     Indication: GLIOBLASTOMA MULTIFORME
     Dosage: 15 MG/KG
     Dates: start: 20090721
  4. DEXAMETHASONE 0.5MG TAB [Concomitant]
  5. METOCLOPRAMIDE [Concomitant]
  6. NEULASTA [Concomitant]
  7. ONDANSETRON [Concomitant]
  8. VALPROATE SODIUM [Concomitant]
  9. WARFARIN SODIUM [Concomitant]
  10. .. [Concomitant]

REACTIONS (7)
  - BODY TEMPERATURE INCREASED [None]
  - CONFUSIONAL STATE [None]
  - CYTOKINE STORM [None]
  - DEEP VEIN THROMBOSIS [None]
  - DELIRIUM [None]
  - IMPETIGO [None]
  - PETECHIAE [None]
